FAERS Safety Report 12423413 (Version 1)
Quarter: 2016Q2

REPORT INFORMATION
  Report Type: Spontaneous
  Country: US (occurrence: None)
  Receive Date: 20160531
  Receipt Date: 20160531
  Transmission Date: 20160815
  Serious: No
  Sender: FDA-Public Use
  Company Number: None

PATIENT
  Age: 35 Year
  Sex: Female
  Weight: 68.04 kg

DRUGS (4)
  1. MULTIVITAMIN [Concomitant]
     Active Substance: VITAMINS
  2. LEXAPRO [Concomitant]
     Active Substance: ESCITALOPRAM OXALATE
  3. MIRENA [Suspect]
     Active Substance: LEVONORGESTREL
     Indication: CONTRACEPTION
     Dosage: ONE TIME INSERTION VAGINAL
     Route: 067
     Dates: start: 20140114, end: 20150930
  4. FISH OIL [Concomitant]
     Active Substance: FISH OIL

REACTIONS (19)
  - Exercise lack of [None]
  - Stress [None]
  - Procedural pain [None]
  - Burning sensation [None]
  - Pain in extremity [None]
  - Autoimmune disorder [None]
  - Fatigue [None]
  - Alopecia [None]
  - Dysmenorrhoea [None]
  - Contusion [None]
  - Weight increased [None]
  - Arthralgia [None]
  - Eyelid disorder [None]
  - Peripheral swelling [None]
  - Abdominal distension [None]
  - Vision blurred [None]
  - Musculoskeletal stiffness [None]
  - Mobility decreased [None]
  - Depression [None]

NARRATIVE: CASE EVENT DATE: 20140114
